FAERS Safety Report 8438279-1 (Version None)
Quarter: 2012Q2

REPORT INFORMATION
  Report Type: 
  Country: None (occurrence: None)
  Receive Date: 20120614
  Receipt Date: 20120604
  Transmission Date: 20120825
  Serious: Yes (Life-Threatening)
  Sender: FDA-Public Use
  Company Number: CN-BAXTER-2012BAX007684

PATIENT
  Sex: Male
  Weight: 79 kg

DRUGS (15)
  1. AROTINOLOL [Concomitant]
     Indication: HYPERTENSION
     Route: 048
     Dates: start: 20111219
  2. ASPIRIN [Concomitant]
     Indication: ANTIPLATELET THERAPY
     Dosage: 0.1
     Route: 048
     Dates: start: 20111219
  3. CLONIDINE [Concomitant]
     Indication: HYPERTENSION
     Dosage: 150UG
     Route: 048
     Dates: start: 20120502
  4. ADALAT [Concomitant]
     Indication: HYPERTENSION
     Route: 048
     Dates: start: 20111219
  5. CALCIUM CARBONATE [Concomitant]
     Indication: BLOOD PHOSPHORUS INCREASED
     Dosage: 0.6
     Route: 048
     Dates: start: 20111219
  6. PERITONEAL DIALYSIS SOLUTION (LACTATE- G 1.5%) [Suspect]
     Route: 033
     Dates: start: 20120311
  7. EPOGEN [Concomitant]
     Dates: start: 20111219
  8. TORSEMIDE [Concomitant]
     Indication: DIURETIC THERAPY
     Route: 048
     Dates: start: 20120502
  9. LEUCOVORIN CALCIUM [Concomitant]
     Route: 048
     Dates: start: 20111219
  10. NOVOLIN 70/30 [Concomitant]
     Dosage: 22U, 12U
     Dates: start: 20111219
  11. DIOVAN [Concomitant]
     Indication: HYPERTENSION
     Route: 048
     Dates: start: 20111219
  12. COMPOUND ALPHA KETOACID [Concomitant]
     Indication: SUPPLEMENTATION THERAPY
     Route: 048
     Dates: start: 20111219
  13. FERROUS SUCCINATE [Concomitant]
     Route: 048
     Dates: start: 20111219
  14. PERITONEAL DIALYSIS SOLUTION (LACTATE- G2.5%) [Suspect]
     Route: 033
     Dates: start: 20120311
  15. LIPITOR [Concomitant]
     Indication: LIPIDS INCREASED
     Route: 048
     Dates: start: 20111219

REACTIONS (5)
  - PLATELET COUNT DECREASED [None]
  - RESPIRATORY FAILURE [None]
  - LUNG INFECTION [None]
  - CARDIAC FAILURE [None]
  - BLOOD PH DECREASED [None]
